FAERS Safety Report 6785678-X (Version None)
Quarter: 2010Q2

REPORT INFORMATION
  Report Type: 
  Country: None (occurrence: None)
  Receive Date: 20100623
  Receipt Date: 20100609
  Transmission Date: 20101027
  Serious: Yes (Hospitalization)
  Sender: FDA-Public Use
  Company Number: JP-RANBAXY-2010RR-34881

PATIENT
  Age: 84 Year
  Sex: Female

DRUGS (6)
  1. AMLODIPINE [Suspect]
     Dosage: UNK
     Dates: start: 20080701
  2. FUROSEMIDE [Suspect]
     Dosage: UNK
     Dates: start: 20080701
  3. CANDESARTAN [Suspect]
     Dosage: UNK
     Dates: start: 20080701
  4. PRAVASTATIN [Suspect]
     Dosage: UNK
     Dates: start: 20080701
  5. ROXATIDINE ACETATE HCL [Suspect]
     Dosage: UNK
     Dates: start: 20080701
  6. HEPARIN [Suspect]
     Dosage: 8000 IU, UNK

REACTIONS (3)
  - DISSEMINATED INTRAVASCULAR COAGULATION [None]
  - HEPARIN-INDUCED THROMBOCYTOPENIA [None]
  - PNEUMONIA [None]
